FAERS Safety Report 6747720-1 (Version None)
Quarter: 2010Q2

REPORT INFORMATION
  Report Type: 
  Country: None (occurrence: None)
  Receive Date: 20100528
  Receipt Date: 20100524
  Transmission Date: 20101027
  Serious: Yes (Hospitalization, Other)
  Sender: FDA-Public Use
  Company Number: US-ELI_LILLY_AND_COMPANY-US201005006545

PATIENT
  Sex: Male

DRUGS (2)
  1. HUMALOG [Suspect]
     Dates: start: 19930101
  2. HUMALOG MIX 75/25 [Suspect]
     Dates: start: 20070101

REACTIONS (2)
  - BLOOD GLUCOSE FLUCTUATION [None]
  - RENAL FAILURE [None]
